FAERS Safety Report 18854862 (Version 1)
Quarter: 2021Q1

REPORT INFORMATION
  Report Type: Report from Study
  Country: US (occurrence: US)
  Receive Date: 20210205
  Receipt Date: 20210205
  Transmission Date: 20210420
  Serious: Yes (Hospitalization, Other)
  Sender: FDA-Public Use
  Company Number: US-JNJFOC-20201116352

PATIENT
  Sex: Female

DRUGS (6)
  1. SILDENAFIL CITRATE. [Concomitant]
     Active Substance: SILDENAFIL CITRATE
  2. OMEPRAZOLE. [Concomitant]
     Active Substance: OMEPRAZOLE
  3. OPSUMIT [Suspect]
     Active Substance: MACITENTAN
     Indication: PULMONARY ARTERIAL HYPERTENSION
     Route: 065
  4. BUMETANIDE. [Concomitant]
     Active Substance: BUMETANIDE
  5. OPSUMIT [Suspect]
     Active Substance: MACITENTAN
     Route: 065
  6. FOLIC ACID. [Concomitant]
     Active Substance: FOLIC ACID

REACTIONS (3)
  - Anaemia [Recovering/Resolving]
  - Illness [Recovered/Resolved]
  - Fluid retention [Recovering/Resolving]
